FAERS Safety Report 9892612 (Version 4)
Quarter: 2014Q1

REPORT INFORMATION
  Report Type: Spontaneous
  Country: DE (occurrence: DE)
  Receive Date: 20140212
  Receipt Date: 20140320
  Transmission Date: 20141002
  Serious: Yes (Other)
  Sender: FDA-Public Use
  Company Number: PHHY2014DE013567

PATIENT
  Sex: Male
  Weight: 90 kg

DRUGS (5)
  1. FORADIL P [Suspect]
     Indication: CHRONIC OBSTRUCTIVE PULMONARY DISEASE
     Dosage: 12 UG, UNK
  2. FORADIL P [Suspect]
     Dosage: UNK UKN, UNK
     Dates: start: 20140131
  3. PANTOZOL [Concomitant]
     Indication: GASTRITIS
     Dosage: 1 DF, QD
  4. JUNIK [Concomitant]
     Indication: EMPHYSEMA
     Dosage: UNK UKN, UNK
  5. JUNIK [Concomitant]
     Indication: CHRONIC OBSTRUCTIVE PULMONARY DISEASE

REACTIONS (7)
  - Deafness [Recovered/Resolved with Sequelae]
  - Oesophagitis [Not Recovered/Not Resolved]
  - Haematemesis [Unknown]
  - Oxygen saturation decreased [Unknown]
  - Agitation [Not Recovered/Not Resolved]
  - Tremor [Not Recovered/Not Resolved]
  - Hypertension [Not Recovered/Not Resolved]
